FAERS Safety Report 6329913-0 (Version None)
Quarter: 2009Q3

REPORT INFORMATION
  Report Type: 
  Country: None (occurrence: None)
  Receive Date: 20090825
  Receipt Date: 20090812
  Transmission Date: 20100115
  Serious: Yes (Disabling, Other)
  Sender: FDA-Public Use
  Company Number: ADR15332009

PATIENT
  Age: 82 Year
  Sex: Female

DRUGS (1)
  1. ALENDRONATE SODIUM [Suspect]
     Indication: SPINAL FRACTURE
     Dosage: 70 MG (1/1 WEEK)

REACTIONS (2)
  - FIBULA FRACTURE [None]
  - PATHOLOGICAL FRACTURE [None]
